FAERS Safety Report 5012118-3 (Version None)
Quarter: 2006Q2

REPORT INFORMATION
  Report Type: 
  Country: None (occurrence: None)
  Receive Date: 20060525
  Receipt Date: 20060525
  Transmission Date: 20061013
  Serious: Yes (Hospitalization)
  Sender: FDA-Public Use
  Company Number: None

PATIENT

DRUGS (1)
  1. DEPAKOTE [Suspect]
     Indication: GRAND MAL CONVULSION
     Dosage: 500 MG PO B.I.D.

REACTIONS (5)
  - DEPRESSED LEVEL OF CONSCIOUSNESS [None]
  - DRUG TOXICITY [None]
  - ENCEPHALOPATHY [None]
  - HYPERAMMONAEMIA [None]
  - SOMNOLENCE [None]
